FAERS Safety Report 18654952 (Version 1)
Quarter: 2020Q4

REPORT INFORMATION
  Report Type: Spontaneous
  Country: US (occurrence: US)
  Receive Date: 20201223
  Receipt Date: 20201223
  Transmission Date: 20210114
  Serious: Yes (Hospitalization)
  Sender: FDA-Public Use
  Company Number: None

PATIENT
  Age: 32 Year
  Sex: Male
  Weight: 133 kg

DRUGS (7)
  1. DIVALPROEX ER [Suspect]
     Active Substance: DIVALPROEX SODIUM
     Indication: PRODUCT USED FOR UNKNOWN INDICATION
     Route: 048
     Dates: start: 20201219, end: 20201223
  2. PROPRANOLOL 20 MG [Suspect]
     Active Substance: PROPRANOLOL HYDROCHLORIDE
  3. QUETIAPINE 150 MG [Suspect]
     Active Substance: QUETIAPINE
  4. VENLAFAXINE [Suspect]
     Active Substance: VENLAFAXINE HYDROCHLORIDE
  5. TRAZODONE [Suspect]
     Active Substance: TRAZODONE HYDROCHLORIDE
  6. LITHIUM. [Suspect]
     Active Substance: LITHIUM
     Indication: PRODUCT USED FOR UNKNOWN INDICATION
     Route: 048
     Dates: start: 20201219, end: 20201223
  7. OLANZAPINE 20 MG [Suspect]
     Active Substance: OLANZAPINE

REACTIONS (2)
  - Wrong product administered [None]
  - Lethargy [None]

NARRATIVE: CASE EVENT DATE: 20201223
